FAERS Safety Report 24850481 (Version 1)
Quarter: 2025Q1

REPORT INFORMATION
  Report Type: Spontaneous
  Country: US (occurrence: US)
  Receive Date: 20250116
  Receipt Date: 20250116
  Transmission Date: 20250408
  Serious: Yes (Death, Other)
  Sender: BRISTOL-MYERS SQUIBB COMPANY
  Company Number: US-BRISTOL-MYERS SQUIBB COMPANY-2025-004368

PATIENT
  Age: 60 Year
  Sex: Female
  Weight: 73.6 kg

DRUGS (11)
  1. REVLIMID [Suspect]
     Active Substance: LENALIDOMIDE
     Indication: Diffuse large B-cell lymphoma
     Dosage: DOSE: 15 MG      FREQ: DAILY 21 DAYS ON AND 7 DAYS OFF
     Route: 048
     Dates: start: 20230217, end: 202407
  2. REVLIMID [Suspect]
     Active Substance: LENALIDOMIDE
     Route: 048
  3. TAFASITAMAB [Concomitant]
     Active Substance: TAFASITAMAB
     Indication: Product used for unknown indication
  4. MONJUVI [Concomitant]
     Active Substance: TAFASITAMAB-CXIX
     Indication: Product used for unknown indication
  5. TYLENOL [Concomitant]
     Active Substance: ACETAMINOPHEN
     Indication: Product used for unknown indication
  6. ATENOLOL [Concomitant]
     Active Substance: ATENOLOL
     Indication: Product used for unknown indication
  7. WELLBUTRIN [Concomitant]
     Active Substance: BUPROPION HYDROCHLORIDE
     Indication: Product used for unknown indication
  8. MULTIVITAMIN [COLECALCIFEROL;NICOTINAMIDE;PYRIDOXINE HYDROCHLORIDE;RET [Concomitant]
     Indication: Product used for unknown indication
  9. PRAVASTATIN [Concomitant]
     Active Substance: PRAVASTATIN
     Indication: Product used for unknown indication
  10. LUMIGAN [Concomitant]
     Active Substance: BIMATOPROST
     Indication: Product used for unknown indication
  11. XIIDRA [Concomitant]
     Active Substance: LIFITEGRAST
     Indication: Product used for unknown indication

REACTIONS (2)
  - Myocardial infarction [Fatal]
  - Off label use [Unknown]

NARRATIVE: CASE EVENT DATE: 20240710
